FAERS Safety Report 5494441-1 (Version None)
Quarter: 2007Q4

REPORT INFORMATION
  Report Type: 
  Country: None (occurrence: None)
  Receive Date: 20071022
  Receipt Date: 20071022
  Transmission Date: 20080405
  Serious: Yes (Life-Threatening, Hospitalization)
  Sender: FDA-Public Use
  Company Number: None

PATIENT
  Age: 16 Year
  Sex: Female
  Weight: 83.9 kg

DRUGS (1)
  1. DROSPIRENONE AND ETHINYL ESTRADIOL [Suspect]
     Indication: CONTRACEPTION
     Dosage: 3 MG DROSPERINONE /30 MCGDAILY PO
     Route: 048
     Dates: start: 20070826, end: 20070930

REACTIONS (2)
  - DYSPNOEA [None]
  - PLEURITIC PAIN [None]
